FAERS Safety Report 25924194 (Version 2)
Quarter: 2025Q4

REPORT INFORMATION
  Report Type: Spontaneous
  Country: US (occurrence: US)
  Receive Date: 20251015
  Receipt Date: 20251021
  Transmission Date: 20260117
  Serious: No
  Sender: MYLAN
  Company Number: US-MYLANLABS-2025M1081368

PATIENT
  Age: 57 Year
  Sex: Female

DRUGS (4)
  1. BREYNA [Suspect]
     Active Substance: BUDESONIDE\FORMOTEROL FUMARATE
     Indication: Asthma
     Dosage: 160/9 MICROGRAM, BID (TWO PUFFS IN THE MORNING AND TWO PUFFS IN THE NIGHT)
     Dates: start: 2025
  2. BREYNA [Suspect]
     Active Substance: BUDESONIDE\FORMOTEROL FUMARATE
     Dosage: 160/9 MICROGRAM, BID (TWO PUFFS IN THE MORNING AND TWO PUFFS IN THE NIGHT)
     Route: 055
     Dates: start: 2025
  3. BREYNA [Suspect]
     Active Substance: BUDESONIDE\FORMOTEROL FUMARATE
     Dosage: 160/9 MICROGRAM, BID (TWO PUFFS IN THE MORNING AND TWO PUFFS IN THE NIGHT)
     Route: 055
     Dates: start: 2025
  4. BREYNA [Suspect]
     Active Substance: BUDESONIDE\FORMOTEROL FUMARATE
     Dosage: 160/9 MICROGRAM, BID (TWO PUFFS IN THE MORNING AND TWO PUFFS IN THE NIGHT)
     Dates: start: 2025

REACTIONS (5)
  - Tremor [Unknown]
  - Wrong technique in product usage process [Unknown]
  - Product taste abnormal [Unknown]
  - Drug ineffective [Unknown]
  - Device issue [Unknown]

NARRATIVE: CASE EVENT DATE: 20250901
